FAERS Safety Report 17060693 (Version 3)
Quarter: 2019Q4

REPORT INFORMATION
  Report Type: Spontaneous
  Country: DE (occurrence: DE)
  Receive Date: 20191121
  Receipt Date: 20191231
  Transmission Date: 20200122
  Serious: Yes (Death, Other)
  Sender: FDA-Public Use
  Company Number: DE-MYLANLABS-2019M1111491

PATIENT
  Age: 38 Year
  Sex: Female

DRUGS (2)
  1. LEVETIRACETAM. [Suspect]
     Active Substance: LEVETIRACETAM
     Dosage: 750 MILLIGRAM, BID,  2X/DAY (BID)
     Route: 048
  2. LEVETIRACETAM. [Suspect]
     Active Substance: LEVETIRACETAM
     Indication: EPILEPSY
     Dosage: 500 MILLIGRAM, BID, 2X/DAY (BID)
     Route: 048

REACTIONS (5)
  - Stillbirth [Recovered/Resolved]
  - Cerebral haemorrhage [Fatal]
  - Affect lability [Unknown]
  - Anticonvulsant drug level decreased [Unknown]
  - Maternal exposure during pregnancy [Recovered/Resolved]
